FAERS Safety Report 7375460-7 (Version None)
Quarter: 2011Q1

REPORT INFORMATION
  Report Type: 
  Country: None (occurrence: None)
  Receive Date: 20110325
  Receipt Date: 20110316
  Transmission Date: 20110831
  Serious: Yes (Death, Hospitalization, Other)
  Sender: FDA-Public Use
  Company Number: BR-SANOFI-AVENTIS-2011SA009883

PATIENT
  Sex: Male
  Weight: 120 kg

DRUGS (11)
  1. AUTOPEN 24 [Concomitant]
     Dates: end: 20101221
  2. NPH INSULIN [Concomitant]
  3. HYDRALAZINE HCL [Suspect]
  4. LANTUS [Suspect]
     Indication: TYPE 2 DIABETES MELLITUS
     Route: 058
     Dates: start: 20101001
  5. VALSARTAN [Suspect]
  6. THIOCTACID [Suspect]
     Route: 048
  7. OMEPRAZOLE [Concomitant]
     Indication: GASTRIC DISORDER
     Route: 048
     Dates: end: 20101221
  8. HUMULIN R [Concomitant]
  9. ALISKIREN [Suspect]
  10. BENICAR [Suspect]
     Route: 048
     Dates: start: 20100101
  11. PENTOXIFYLLINE [Concomitant]
     Indication: FINGER AMPUTATION

REACTIONS (11)
  - MULTI-ORGAN FAILURE [None]
  - INFECTION [None]
  - LUNG DISORDER [None]
  - DYSPNOEA [None]
  - PANIC ATTACK [None]
  - INFLUENZA [None]
  - COMA [None]
  - INSOMNIA [None]
  - COUGH [None]
  - RENAL FAILURE [None]
  - RHINITIS [None]
